FAERS Safety Report 12111837 (Version 2)
Quarter: 2016Q2

REPORT INFORMATION
  Report Type: Report from Study
  Country: US (occurrence: US)
  Receive Date: 20160224
  Receipt Date: 20160427
  Transmission Date: 20160815
  Serious: Yes (Other)
  Sender: FDA-Public Use
  Company Number: US-BIOMARINAP-US-2016-109014

PATIENT
  Sex: Male

DRUGS (1)
  1. ALDURAZYME [Suspect]
     Active Substance: LARONIDASE
     Indication: MUCOPOLYSACCHARIDOSIS I
     Dosage: 14.5 MG, QW
     Route: 042
     Dates: start: 20160204

REACTIONS (2)
  - Nasal obstruction [Recovering/Resolving]
  - Arthropod bite [Unknown]
